FAERS Safety Report 14461318 (Version 4)
Quarter: 2018Q3

REPORT INFORMATION
  Report Type: Spontaneous
  Country: AT (occurrence: AT)
  Receive Date: 20180130
  Receipt Date: 20180706
  Transmission Date: 20181010
  Serious: Yes (Death, Other)
  Sender: FDA-Public Use
  Company Number: AT-PFIZER INC-2018038007

PATIENT
  Sex: Male

DRUGS (10)
  1. DOCETAXEL. [Suspect]
     Active Substance: DOCETAXEL
     Indication: ARTHRALGIA
     Dosage: 1, CYCLIC
     Route: 051
     Dates: start: 201605, end: 201605
  2. CABAZITAXEL [Concomitant]
     Active Substance: CABAZITAXEL
     Dosage: UNK
     Dates: start: 201609
  3. DOCETAXEL. [Suspect]
     Active Substance: DOCETAXEL
     Dosage: 1, CYCLIC
     Route: 051
     Dates: start: 201608, end: 201608
  4. DOCETAXEL. [Suspect]
     Active Substance: DOCETAXEL
     Dosage: 1, CYCLIC
     Route: 051
     Dates: start: 201608, end: 201608
  5. DOCETAXEL. [Suspect]
     Active Substance: DOCETAXEL
     Indication: PROSTATE CANCER
     Dosage: 1, CYCLIC
     Route: 051
     Dates: start: 201605, end: 201605
  6. DOCETAXEL. [Suspect]
     Active Substance: DOCETAXEL
     Dosage: 1 OT, QD
     Route: 051
     Dates: start: 20160801, end: 20160801
  7. RADIUM 223 [Concomitant]
     Active Substance: RADIUM RA-223 DICHLORIDE
     Dosage: UNK
     Route: 065
     Dates: start: 201509, end: 201608
  8. DOCETAXEL. [Suspect]
     Active Substance: DOCETAXEL
     Dosage: 1 OT, QD
     Route: 051
     Dates: start: 20160501, end: 20160501
  9. ENZALUTAMIDE [Concomitant]
     Active Substance: ENZALUTAMIDE
     Indication: PROSTATIC SPECIFIC ANTIGEN
     Dosage: UNK
     Dates: start: 201602, end: 201604
  10. ABIRATERONE [Concomitant]
     Active Substance: ABIRATERONE
     Indication: METASTASES TO BONE
     Dosage: UNK
     Dates: start: 201512

REACTIONS (3)
  - Polyneuropathy [Unknown]
  - Death [Fatal]
  - Dysgeusia [Unknown]

NARRATIVE: CASE EVENT DATE: 201710
